FAERS Safety Report 10791496 (Version 1)
Quarter: 2015Q1

REPORT INFORMATION
  Report Type: Spontaneous
  Country: US (occurrence: US)
  Receive Date: 20150213
  Receipt Date: 20150213
  Transmission Date: 20150721
  Serious: Yes (Hospitalization, Congenital Anomaly, Other)
  Sender: FDA-Public Use
  Company Number: US-GLAXOSMITHKLINE-US2015012620

PATIENT
  Sex: Male

DRUGS (4)
  1. CALCIROL [Concomitant]
  2. LEVOTHYROXINE [Concomitant]
     Active Substance: LEVOTHYROXINE
  3. VOTRIENT [Suspect]
     Active Substance: PAZOPANIB HYDROCHLORIDE
     Indication: THYROID CANCER
     Dosage: 600 MG, QD
     Route: 064
     Dates: start: 201108, end: 201401
  4. CALCIUM [Concomitant]
     Active Substance: CALCIUM

REACTIONS (5)
  - Foetal exposure during pregnancy [Unknown]
  - Heart disease congenital [Recovering/Resolving]
  - Coarctation of the aorta [Recovering/Resolving]
  - Anomalous pulmonary venous connection [Recovering/Resolving]
  - Cardiac septal defect [Recovering/Resolving]

NARRATIVE: CASE EVENT DATE: 2014
